FAERS Safety Report 9801702 (Version 1)
Quarter: 2014Q1

REPORT INFORMATION
  Report Type: Spontaneous
  Country: JP (occurrence: JP)
  Receive Date: 20140107
  Receipt Date: 20140107
  Transmission Date: 20141002
  Serious: Yes (Death, Hospitalization, Other)
  Sender: FDA-Public Use
  Company Number: PHHY2013JP154247

PATIENT
  Age: 66 Year
  Sex: Male

DRUGS (5)
  1. DOCETAXEL [Suspect]
     Indication: GASTRIC CANCER
     Dosage: 40 MG/M2, UNK
  2. PACLITAXEL [Suspect]
     Indication: GASTRIC CANCER
  3. CISPLATIN [Suspect]
     Indication: GASTRIC CANCER
  4. DEXAMETHASONE [Suspect]
     Indication: HYPERSENSITIVITY
     Dosage: 8 MG, UNK
  5. GIMERACIL W/OTERACIL POTASSIUM/TEGAFUR [Suspect]
     Indication: GASTRIC CANCER
     Dosage: 100 MG PER BODY

REACTIONS (5)
  - Malignant ascites [Fatal]
  - Gastrointestinal perforation [Recovering/Resolving]
  - Abdominal pain [Recovering/Resolving]
  - Hypersensitivity [Unknown]
  - Rash [Unknown]
